FAERS Safety Report 8087706-0 (Version None)
Quarter: 2012Q1

REPORT INFORMATION
  Report Type: 
  Country: None (occurrence: None)
  Receive Date: 20120128
  Receipt Date: 20110512
  Transmission Date: 20120608
  Serious: No
  Sender: FDA-Public Use
  Company Number: US-ABBOTT-11P-163-0721099-00

PATIENT
  Sex: Male
  Weight: 59.02 kg

DRUGS (6)
  1. HUMIRA [Suspect]
     Indication: COLITIS ULCERATIVE
  2. HUMIRA [Suspect]
     Indication: CROHN'S DISEASE
     Route: 058
  3. ASACOL [Concomitant]
     Indication: COLITIS ULCERATIVE
  4. ASACOL [Concomitant]
     Indication: CROHN'S DISEASE
     Route: 048
  5. ASACOL [Concomitant]
     Indication: IRRITABLE BOWEL SYNDROME
  6. HUMIRA [Suspect]
     Indication: IRRITABLE BOWEL SYNDROME

REACTIONS (8)
  - TOOTH ABSCESS [None]
  - TOOTHACHE [None]
  - CATARACT [None]
  - TOOTH FRACTURE [None]
  - MIGRAINE [None]
  - FATIGUE [None]
  - JOINT SWELLING [None]
  - ARTHRALGIA [None]
